FAERS Safety Report 12441983 (Version 3)
Quarter: 2016Q3

REPORT INFORMATION
  Report Type: Spontaneous
  Country: KR (occurrence: KR)
  Receive Date: 20160607
  Receipt Date: 20160916
  Transmission Date: 20161109
  Serious: Yes (Hospitalization, Other)
  Sender: FDA-Public Use
  Company Number: KR-TAKEDA-2016MPI002505

PATIENT
  Age: 71 Year
  Sex: Female
  Weight: 55.2 kg

DRUGS (88)
  1. VELCADE [Suspect]
     Active Substance: BORTEZOMIB
     Indication: PLASMA CELL MYELOMA
     Dosage: 1.5 MG, QD
     Route: 058
     Dates: start: 20150828
  2. GLIMEPIRIDE W/METFORMIN [Concomitant]
     Active Substance: GLIMEPIRIDE\METFORMIN
     Indication: DIABETES MELLITUS
     Dosage: UNK, QD
     Route: 048
     Dates: end: 20150831
  3. ONDANSETRON HCL [Concomitant]
     Active Substance: ONDANSETRON HYDROCHLORIDE
     Indication: FATIGUE
     Dosage: 8 MG, UNK
     Route: 042
     Dates: start: 20151005, end: 20151005
  4. LORAZEPAM. [Concomitant]
     Active Substance: LORAZEPAM
     Indication: INSOMNIA
  5. AMBROXOL [Concomitant]
     Active Substance: AMBROXOL
     Indication: PRODUCTIVE COUGH
     Dosage: 15 MG, TID
     Route: 042
     Dates: start: 20150928
  6. FLUCONAZOLE. [Concomitant]
     Active Substance: FLUCONAZOLE
     Indication: ANTIFUNGAL PROPHYLAXIS
     Dosage: 100 MG, QD
     Route: 048
     Dates: start: 20150825, end: 20150920
  7. FILGRASTIM [Concomitant]
     Active Substance: FILGRASTIM
     Dosage: 300 ?G, UNK
     Route: 058
     Dates: start: 20150920, end: 20150920
  8. GABAPENTIN. [Concomitant]
     Active Substance: GABAPENTIN
     Indication: HYPOAESTHESIA
     Dosage: 300 MG, TID
     Route: 048
     Dates: start: 20151103
  9. SMECTA                             /07327601/ [Concomitant]
     Indication: DIARRHOEA
     Dosage: 15 ML, QD
     Route: 048
     Dates: start: 20151008
  10. ONDANSETRON HCL [Concomitant]
     Active Substance: ONDANSETRON HYDROCHLORIDE
     Indication: NAUSEA
     Dosage: 4 MG, UNK
     Route: 048
     Dates: start: 20150901, end: 20151115
  11. AMODIPIN [Concomitant]
     Indication: HYPERTENSION
     Dosage: 5 MG, QD
     Route: 048
     Dates: start: 20151024, end: 20151115
  12. METHYLPHENIDATE. [Concomitant]
     Active Substance: METHYLPHENIDATE
     Indication: DELIRIUM
     Dosage: 5 MG, BID
     Route: 048
     Dates: start: 20151109, end: 20151115
  13. CEFTRIAXONE. [Concomitant]
     Active Substance: CEFTRIAXONE
     Indication: URINARY TRACT INFECTION
     Dosage: 2 G, QD
     Route: 042
     Dates: start: 20151110, end: 20151112
  14. ACYCLOVIR                          /00587301/ [Concomitant]
     Active Substance: ACYCLOVIR
     Dosage: 200 MG, BID
     Route: 048
     Dates: start: 20150825, end: 20151001
  15. LORAZEPAM. [Concomitant]
     Active Substance: LORAZEPAM
     Indication: VOMITING
  16. MACPERAN [Concomitant]
     Active Substance: METOCLOPRAMIDE HYDROCHLORIDE
     Indication: NAUSEA
     Dosage: 10 MG, UNK
     Route: 042
     Dates: start: 20150829
  17. ZOLPIDEM [Concomitant]
     Active Substance: ZOLPIDEM\ZOLPIDEM TARTRATE
     Indication: INSOMNIA
     Dosage: 6.25 MG, UNK
     Route: 048
     Dates: start: 20150924, end: 20151101
  18. CHLORPHENIRAMINE MALEATE. [Concomitant]
     Active Substance: CHLORPHENIRAMINE MALEATE
     Indication: INSOMNIA
     Dosage: 4 MG, UNK
     Route: 042
     Dates: start: 20150928, end: 20150928
  19. LEVOFLOXACIN. [Concomitant]
     Active Substance: LEVOFLOXACIN
     Indication: INFECTION PROPHYLAXIS
     Dosage: 500 MG, QD
     Route: 048
     Dates: start: 20150825, end: 20150921
  20. NOVOMIX [Concomitant]
     Active Substance: INSULIN ASPART
     Dosage: UNK, QD
     Route: 058
     Dates: start: 20151011, end: 20151013
  21. VELCADE [Suspect]
     Active Substance: BORTEZOMIB
     Dosage: 1.5 MG, UNK
     Route: 058
     Dates: start: 20150921, end: 20150925
  22. PREDNISONE. [Suspect]
     Active Substance: PREDNISONE
     Dosage: 90 MG, UNK
     Route: 048
     Dates: start: 20151014, end: 20151017
  23. ONDANSETRON HCL [Concomitant]
     Active Substance: ONDANSETRON HYDROCHLORIDE
     Indication: NAUSEA
     Dosage: 8 MG, UNK
     Route: 042
     Dates: start: 20150928, end: 20150928
  24. LORAZEPAM. [Concomitant]
     Active Substance: LORAZEPAM
     Indication: NAUSEA
     Dosage: 1 MG, UNK
     Route: 042
     Dates: start: 20150929, end: 20151105
  25. SEPTRIN [Concomitant]
     Active Substance: SULFAMETHOXAZOLE\TRIMETHOPRIM
     Indication: INFECTION PROPHYLAXIS
     Dosage: 480 MG, QD
     Route: 048
     Dates: start: 20150825, end: 20151001
  26. LOSARTAN. [Concomitant]
     Active Substance: LOSARTAN
     Indication: HYPERTENSION
     Dosage: 50 MG, QD
     Route: 048
     Dates: start: 20150914
  27. ULTRACET [Concomitant]
     Active Substance: ACETAMINOPHEN\TRAMADOL HYDROCHLORIDE
     Indication: PELVIC PAIN
     Dosage: UNK
     Route: 048
     Dates: start: 20150924
  28. TARGIN [Concomitant]
     Active Substance: NALOXONE HYDROCHLORIDE\OXYCODONE HYDROCHLORIDE
     Dosage: UNK, BID
     Route: 048
     Dates: start: 20150901, end: 20150908
  29. PANORIN [Concomitant]
     Indication: PROPHYLAXIS
     Dosage: 60 MG, UNK
     Route: 042
     Dates: start: 20151019, end: 20151019
  30. THIAMINE. [Concomitant]
     Active Substance: THIAMINE
     Indication: NUTRITIONAL SUPPLEMENTATION
  31. NOVOMIX [Concomitant]
     Active Substance: INSULIN ASPART
     Dosage: UNK, QD
     Route: 058
     Dates: start: 20151014, end: 20151024
  32. EXFORGE [Concomitant]
     Active Substance: AMLODIPINE BESYLATE\VALSARTAN
     Indication: HYPERTENSION
     Dosage: UNK
     Route: 048
     Dates: end: 20150913
  33. LOPERAMIDE [Concomitant]
     Active Substance: LOPERAMIDE
     Indication: DIARRHOEA
     Dosage: 2 MG, UNK
     Route: 048
     Dates: start: 20151011, end: 20151105
  34. AMITRIPTYLINE [Concomitant]
     Active Substance: AMITRIPTYLINE
     Indication: HYPOAESTHESIA
     Dosage: 10 MG, QD
     Route: 048
     Dates: start: 20151109
  35. MORPHINE [Concomitant]
     Active Substance: MORPHINE
     Indication: PELVIC PAIN
     Dosage: 5 MG, UNK
     Route: 042
     Dates: start: 20150909
  36. MEGESTROL [Concomitant]
     Active Substance: MEGESTROL
     Indication: DECREASED APPETITE
     Dosage: 400 MG, QD
     Route: 048
     Dates: start: 20150911, end: 20151029
  37. TARGIN [Concomitant]
     Active Substance: NALOXONE HYDROCHLORIDE\OXYCODONE HYDROCHLORIDE
     Dosage: UNK, BID
     Route: 048
     Dates: start: 20150909, end: 20151001
  38. HYDROCORTISONE. [Concomitant]
     Active Substance: HYDROCORTISONE
     Indication: PREMEDICATION
     Dosage: 100 MG, UNK
     Route: 042
     Dates: start: 20150909, end: 20150909
  39. HARDCAL [Concomitant]
     Indication: PROPHYLAXIS
     Dosage: UNK, BID
     Route: 048
     Dates: start: 20150827, end: 20150921
  40. AMLODIPINE [Concomitant]
     Active Substance: AMLODIPINE BESYLATE
     Indication: HYPERTENSION
     Dosage: 5 MG, QD
     Route: 048
     Dates: start: 20150914, end: 20150923
  41. GRANISETRON [Concomitant]
     Active Substance: GRANISETRON
     Dosage: 34.3 MG, UNK
     Route: 061
     Dates: start: 20150922, end: 20151113
  42. METHYLPHENIDATE. [Concomitant]
     Active Substance: METHYLPHENIDATE
     Dosage: 10 MG, BID
     Route: 048
     Dates: start: 20151116
  43. SANCUSO [Concomitant]
     Active Substance: GRANISETRON
     Indication: NAUSEA
     Dosage: 34.3 MG, UNK
     Route: 061
     Dates: start: 20150922, end: 20151113
  44. NYSTATIN. [Concomitant]
     Active Substance: NYSTATIN
     Indication: ANTIFUNGAL PROPHYLAXIS
     Dosage: 20 ML, QD
     Route: 048
     Dates: start: 20150925
  45. LACTULOSE. [Concomitant]
     Active Substance: LACTULOSE
     Indication: CONSTIPATION PROPHYLAXIS
     Dosage: 15 ML, TID
     Route: 048
     Dates: start: 20151110, end: 20151110
  46. FUROSEMIDE. [Concomitant]
     Active Substance: FUROSEMIDE
     Indication: OVERWEIGHT
     Dosage: 20 MG, UNK
     Route: 042
     Dates: start: 20150825, end: 20151105
  47. TARGIN [Concomitant]
     Active Substance: NALOXONE HYDROCHLORIDE\OXYCODONE HYDROCHLORIDE
     Dosage: UNK, BID
     Route: 048
     Dates: start: 20151002, end: 20151005
  48. LEKOVIT CA [Concomitant]
     Active Substance: CALCIUM CARBONATE\CHOLECALCIFEROL
     Indication: PROPHYLAXIS
     Dosage: UNK, BID
     Route: 048
     Dates: start: 20150827, end: 20150922
  49. CHLORPHENIRAMINE MALEATE. [Concomitant]
     Active Substance: CHLORPHENIRAMINE MALEATE
     Indication: RASH MACULO-PAPULAR
     Dosage: 4 MG, UNK
     Route: 042
     Dates: start: 20150910, end: 20150913
  50. CHLORPHENIRAMINE MALEATE. [Concomitant]
     Active Substance: CHLORPHENIRAMINE MALEATE
     Dosage: 4 MG, UNK
     Route: 042
     Dates: start: 20151025, end: 20151025
  51. FILGRASTIM [Concomitant]
     Active Substance: FILGRASTIM
     Indication: NEUTROPHIL COUNT DECREASED
     Dosage: 300 ?G, UNK
     Route: 058
     Dates: start: 20150907, end: 20150907
  52. FILGRASTIM [Concomitant]
     Active Substance: FILGRASTIM
     Dosage: 300 ?G, UNK
     Route: 058
     Dates: start: 20150914, end: 20150914
  53. THIAMINE. [Concomitant]
     Active Substance: THIAMINE
     Indication: PROPHYLAXIS
     Dosage: 50 MG, QD
     Route: 042
     Dates: start: 20151022, end: 20151108
  54. NOVOMIX [Concomitant]
     Active Substance: INSULIN ASPART
     Indication: DIABETES MELLITUS
     Dosage: UNK, QD
     Route: 058
     Dates: start: 20151006, end: 20151008
  55. NOVOMIX [Concomitant]
     Active Substance: INSULIN ASPART
     Dosage: UNK, QD
     Route: 058
     Dates: start: 20151009, end: 20151010
  56. GRANISETRON [Concomitant]
     Active Substance: GRANISETRON
     Indication: NAUSEA
     Dosage: 34.3 MG, UNK
     Route: 061
     Dates: start: 20150831, end: 20150910
  57. DEXAMETHASONE. [Concomitant]
     Active Substance: DEXAMETHASONE
     Indication: PELVIC PAIN
     Dosage: 20 MG, QD
     Route: 042
     Dates: start: 20150826, end: 20150827
  58. PHAZYME COMPLEX [Concomitant]
     Indication: NAUSEA
     Dosage: UNK
     Route: 048
     Dates: start: 20150901, end: 20150901
  59. MORPHINE [Concomitant]
     Active Substance: MORPHINE
     Indication: HYPOAESTHESIA
     Dosage: 10 MG, TID
     Route: 048
     Dates: start: 20151106, end: 20160203
  60. MAGNES [Concomitant]
     Indication: MINERAL SUPPLEMENTATION
     Dosage: 950 MG, TID
     Route: 048
     Dates: start: 20150824, end: 20150824
  61. PREDNISONE. [Suspect]
     Active Substance: PREDNISONE
     Indication: PLASMA CELL MYELOMA
     Dosage: 90 MG, QD
     Route: 048
     Dates: start: 20150828, end: 20150831
  62. MELPHALAN [Suspect]
     Active Substance: MELPHALAN
     Dosage: 10 MG, UNK
     Route: 048
     Dates: start: 20151014, end: 20151017
  63. SANCUSO [Concomitant]
     Active Substance: GRANISETRON
     Indication: PROPHYLAXIS OF NAUSEA AND VOMITING
     Dosage: 34.3 MG, UNK
     Route: 061
     Dates: start: 20150831, end: 20150910
  64. FAMOTIDINE. [Concomitant]
     Active Substance: FAMOTIDINE
     Indication: GASTRITIS PROPHYLAXIS
     Dosage: 20 MG, BID
     Route: 042
     Dates: start: 20150826
  65. ACYCLOVIR                          /00587301/ [Concomitant]
     Active Substance: ACYCLOVIR
     Indication: ANTIVIRAL PROPHYLAXIS
     Dosage: 200 MG, BID
     Route: 048
     Dates: start: 20150825, end: 20151002
  66. ACYCLOVIR                          /00587301/ [Concomitant]
     Active Substance: ACYCLOVIR
     Dosage: 200 MG, QD
     Route: 048
     Dates: start: 20151014
  67. FEXOFENADINE HCL [Concomitant]
     Active Substance: FEXOFENADINE HYDROCHLORIDE
     Indication: RASH
     Dosage: 180 MG, UNK
     Route: 048
     Dates: start: 20150914
  68. SIMETHICONE (DIMETHICONE) [Concomitant]
     Active Substance: DIMETHICONE
     Indication: NAUSEA
     Dosage: UNK
     Route: 048
     Dates: start: 20150901, end: 20150901
  69. VELCADE [Suspect]
     Active Substance: BORTEZOMIB
     Dosage: 2 MG, UNK
     Route: 058
     Dates: start: 20150831, end: 20150918
  70. MELPHALAN [Suspect]
     Active Substance: MELPHALAN
     Indication: PLASMA CELL MYELOMA
     Dosage: 14 MG, QD
     Route: 048
     Dates: start: 20150828, end: 20150831
  71. IRCODON [Concomitant]
     Indication: PELVIC PAIN
     Dosage: 5 MG, UNK
     Route: 048
     Dates: start: 20150823
  72. HUMALIN [Concomitant]
     Active Substance: INSULIN NOS
     Indication: DIABETES MELLITUS
     Dosage: UNK
     Route: 058
     Dates: start: 20150928, end: 20151102
  73. NYSTATIN. [Concomitant]
     Active Substance: NYSTATIN
     Dosage: 5 ML, QID
     Route: 048
     Dates: start: 20150924, end: 20150924
  74. PAMIDRONATE [Concomitant]
     Active Substance: PAMIDRONATE DISODIUM
     Indication: OSTEOPENIA
     Dosage: 60 MG, UNK
     Route: 042
     Dates: start: 20150917, end: 20150917
  75. CHLORPHENIRAMINE MALEATE. [Concomitant]
     Active Substance: CHLORPHENIRAMINE MALEATE
     Indication: PREMEDICATION
     Dosage: 4 MG, UNK
     Route: 042
     Dates: start: 20150909, end: 20150909
  76. AMLODIPINE [Concomitant]
     Active Substance: AMLODIPINE BESYLATE
     Dosage: 5 MG, BID
     Route: 048
     Dates: start: 20150924, end: 20151023
  77. AMLODIPINE [Concomitant]
     Active Substance: AMLODIPINE BESYLATE
     Dosage: 5 MG, QD
     Route: 048
     Dates: start: 20151024, end: 20151115
  78. PETHIDINE [Concomitant]
     Active Substance: MEPERIDINE
     Indication: PROPHYLAXIS
     Dosage: 25 MG, UNK
     Route: 042
     Dates: start: 20151102, end: 20151102
  79. MUCOSOL                            /00082801/ [Concomitant]
     Indication: PROPHYLAXIS
     Dosage: 16 MG, BID
     Route: 048
     Dates: start: 20151024
  80. PNEUMOCOCCAL VACCINE POLYVALENT NOS [Concomitant]
     Active Substance: PNEUMOCOCCAL VACCINE POLYVALENT
     Indication: INFECTION PROPHYLAXIS
     Dosage: UNK
     Route: 030
     Dates: start: 20151029, end: 20151029
  81. DULOXETINE. [Concomitant]
     Active Substance: DULOXETINE
     Indication: HYPOAESTHESIA
     Dosage: 30 MG, QD
     Route: 048
     Dates: start: 20151106, end: 20151108
  82. VELCADE [Suspect]
     Active Substance: BORTEZOMIB
     Dosage: 1.1 MG, UNK
     Route: 058
     Dates: start: 20151014, end: 20151111
  83. DEXAMETHASONE. [Concomitant]
     Active Substance: DEXAMETHASONE
     Indication: PELVIC PAIN
     Dosage: 10 MG, UNK
     Route: 048
     Dates: start: 20150825, end: 20150825
  84. PALONOSETRON [Concomitant]
     Active Substance: PALONOSETRON
     Indication: NAUSEA
     Dosage: 0.25 MG, UNK
     Route: 042
     Dates: start: 20150926, end: 20150927
  85. ASPIRIN. [Concomitant]
     Active Substance: ASPIRIN
     Indication: HYPERTENSION
     Dosage: 100 MG, QD
     Route: 048
  86. TARGIN [Concomitant]
     Active Substance: NALOXONE HYDROCHLORIDE\OXYCODONE HYDROCHLORIDE
     Indication: PELVIC PAIN
     Dosage: UNK, BID
     Route: 048
     Dates: start: 20150831
  87. EXPOGI [Concomitant]
     Indication: HYPERTENSION
     Dosage: UNK, QD
     Route: 048
     Dates: end: 20150913
  88. PETHIDINE [Concomitant]
     Active Substance: MEPERIDINE
     Indication: PREMEDICATION

REACTIONS (13)
  - Vomiting [Unknown]
  - Delirium [Unknown]
  - Insomnia [Unknown]
  - Constipation [Unknown]
  - Hypoaesthesia [Unknown]
  - Urinary tract infection [Unknown]
  - Fatigue [Recovered/Resolved]
  - Plasma cell myeloma [Unknown]
  - Neutrophil count decreased [Unknown]
  - Rash maculo-papular [Unknown]
  - Nausea [Unknown]
  - Productive cough [Unknown]
  - Diarrhoea [Unknown]

NARRATIVE: CASE EVENT DATE: 2015
